FAERS Safety Report 9099230 (Version 1)
Quarter: 2013Q1

REPORT INFORMATION
  Report Type: Spontaneous
  Country: US (occurrence: US)
  Receive Date: 20130214
  Receipt Date: 20130214
  Transmission Date: 20140127
  Serious: No
  Sender: FDA-Public Use
  Company Number: US-COVIDIEN/TYCO HEALTHCARE/MALLINCKRODT-T201300014

PATIENT
  Age: 62 Year
  Sex: Male

DRUGS (2)
  1. FENTANYL TRANSDERMAL SYSTEM [Suspect]
     Indication: PRODUCT USED FOR UNKNOWN INDICATION
     Dosage: 50 UG/HR, ONE EVERY 72 HOURS
     Route: 062
     Dates: start: 201212
  2. FENTANYL TRANSDERMAL SYSTEM [Suspect]
     Dosage: 100 UG/HR, 1 FTS Q 72 HOURS
     Route: 062
     Dates: start: 201212

REACTIONS (2)
  - Application site haemorrhage [Recovering/Resolving]
  - Application site irritation [Recovering/Resolving]
